FAERS Safety Report 11814259 (Version 3)
Quarter: 2016Q1

REPORT INFORMATION
  Report Type: Report from Study
  Country: BR (occurrence: BR)
  Receive Date: 20151209
  Receipt Date: 20160308
  Transmission Date: 20160525
  Serious: Yes (Hospitalization, Disabling, Other)
  Sender: FDA-Public Use
  Company Number: BR-ABBVIE-15K-020-1513102-00

PATIENT
  Age: 55 Year
  Sex: Female
  Weight: 80 kg

DRUGS (2)
  1. HUMIRA [Suspect]
     Active Substance: ADALIMUMAB
     Route: 058
     Dates: end: 201511
  2. HUMIRA [Suspect]
     Active Substance: ADALIMUMAB
     Indication: RHEUMATOID ARTHRITIS
     Route: 058
     Dates: start: 20120514, end: 2014

REACTIONS (16)
  - Seizure [Not Recovered/Not Resolved]
  - Abasia [Not Recovered/Not Resolved]
  - Bedridden [Unknown]
  - Hospitalisation [Unknown]
  - Coma [Recovering/Resolving]
  - Mobility decreased [Recovered/Resolved]
  - Arthritis infective [Unknown]
  - Drug ineffective [Unknown]
  - Pain [Unknown]
  - Central nervous system lesion [Not Recovered/Not Resolved]
  - Speech disorder [Recovered/Resolved]
  - Syncope [Recovering/Resolving]
  - Adverse drug reaction [Unknown]
  - Apallic syndrome [Unknown]
  - Cognitive disorder [Recovered/Resolved]
  - Immunodeficiency [Unknown]

NARRATIVE: CASE EVENT DATE: 201406
